FAERS Safety Report 11173753 (Version 2)
Quarter: 2015Q2

REPORT INFORMATION
  Report Type: Report from Study
  Country: CA (occurrence: CA)
  Receive Date: 20150609
  Receipt Date: 20150630
  Transmission Date: 20150821
  Serious: Yes (Other)
  Sender: FDA-Public Use
  Company Number: CA-ROCHE-1227163

PATIENT
  Age: 45 Year
  Sex: Male
  Weight: 140.9 kg

DRUGS (13)
  1. RITUXAN [Suspect]
     Active Substance: RITUXIMAB
     Route: 042
     Dates: start: 20141231
  2. DIPHENHYDRAMINE HCL [Concomitant]
     Active Substance: DIPHENHYDRAMINE HYDROCHLORIDE
     Indication: PREMEDICATION
     Route: 048
     Dates: start: 20130508
  3. PARIET [Concomitant]
     Active Substance: RABEPRAZOLE SODIUM
     Dosage: DISCONTINUED ABOUT 2-3 MONTHS AGO.
     Route: 065
     Dates: end: 2015
  4. ACETAMINOPHEN. [Concomitant]
     Active Substance: ACETAMINOPHEN
     Indication: PREMEDICATION
     Route: 048
     Dates: start: 20130508
  5. METHYLPREDNISOLONE. [Concomitant]
     Active Substance: METHYLPREDNISOLONE
     Indication: PREMEDICATION
     Route: 042
     Dates: start: 20130508
  6. FUROSEMIDE. [Concomitant]
     Active Substance: FUROSEMIDE
  7. CYMBALTA [Concomitant]
     Active Substance: DULOXETINE HYDROCHLORIDE
     Dosage: DISCONTINUED ABOUT 2-3 MONTHS AGO.
     Route: 065
     Dates: end: 2015
  8. RITUXAN [Suspect]
     Active Substance: RITUXIMAB
     Route: 042
     Dates: start: 20131220
  9. ACTONEL [Concomitant]
     Active Substance: RISEDRONATE SODIUM
     Dosage: DISCONTINUED ABOUT 2-3 MONTHS AGO.
     Route: 065
     Dates: end: 2015
  10. METFORMIN [Concomitant]
     Active Substance: METFORMIN HYDROCHLORIDE
  11. RITUXAN [Suspect]
     Active Substance: RITUXIMAB
     Indication: GRANULOMATOSIS WITH POLYANGIITIS
     Route: 042
     Dates: start: 20130508
  12. PREDNISONE. [Concomitant]
     Active Substance: PREDNISONE
     Dosage: DISCONTINUED ABOUT 2-3 MONTHS AGO.
     Route: 065
     Dates: end: 2015
  13. TOPIRAMATE. [Concomitant]
     Active Substance: TOPIRAMATE

REACTIONS (13)
  - Infusion related reaction [Unknown]
  - Sleep disorder [Unknown]
  - No therapeutic response [Unknown]
  - Blood pressure decreased [Unknown]
  - Weight increased [Unknown]
  - Bladder disorder [Unknown]
  - Anxiety [Unknown]
  - Frustration [Unknown]
  - Hypertension [Unknown]
  - Infusion related reaction [Recovered/Resolved]
  - Depression [Recovering/Resolving]
  - Somnolence [Unknown]
  - Insomnia [Recovering/Resolving]

NARRATIVE: CASE EVENT DATE: 20130515
